FAERS Safety Report 13527112 (Version 1)
Quarter: 2017Q2

REPORT INFORMATION
  Report Type: Spontaneous
  Country: GB (occurrence: GB)
  Receive Date: 20170509
  Receipt Date: 20170509
  Transmission Date: 20170830
  Serious: Yes (Hospitalization)
  Sender: FDA-Public Use
  Company Number: GB-SA-2017SA083267

PATIENT
  Age: 73 Year
  Sex: Male

DRUGS (10)
  1. ALFACALCIDOL [Concomitant]
     Active Substance: ALFACALCIDOL
  2. AMLODIPINE [Concomitant]
     Active Substance: AMLODIPINE BESYLATE
     Dates: end: 20170210
  3. SEVELAMER SALT NOT SPECIFIED [Suspect]
     Active Substance: SEVELAMER
     Route: 048
  4. ATORVASTATIN [Concomitant]
     Active Substance: ATORVASTATIN
  5. CALCIUM ACETATE. [Concomitant]
     Active Substance: CALCIUM ACETATE
  6. RANITIDINE. [Concomitant]
     Active Substance: RANITIDINE
  7. BISOPROLOL [Concomitant]
     Active Substance: BISOPROLOL
  8. THIAMINE. [Concomitant]
     Active Substance: THIAMINE
  9. RENAVIT [Concomitant]
  10. SODIUM BICARBONATE. [Concomitant]
     Active Substance: SODIUM BICARBONATE

REACTIONS (2)
  - Haemoglobin decreased [Unknown]
  - Upper gastrointestinal haemorrhage [Recovered/Resolved]
